FAERS Safety Report 12468524 (Version 3)
Quarter: 2016Q3

REPORT INFORMATION
  Report Type: Report from Study
  Country: US (occurrence: US)
  Receive Date: 20160615
  Receipt Date: 20160718
  Transmission Date: 20161109
  Serious: Yes (Hospitalization)
  Sender: FDA-Public Use
  Company Number: US-B.I. PHARMACEUTICALS,INC./RIDGEFIELD-2016-BI-31861BI

PATIENT
  Age: 75 Year
  Sex: Female

DRUGS (7)
  1. GILOTRIF [Suspect]
     Active Substance: AFATINIB
     Dosage: 10 MG
     Route: 048
     Dates: start: 20160710
  2. OXYGEN. [Concomitant]
     Active Substance: OXYGEN
     Indication: PRODUCT USED FOR UNKNOWN INDICATION
     Route: 065
  3. OPDIVO [Concomitant]
     Active Substance: NIVOLUMAB
     Indication: PRODUCT USED FOR UNKNOWN INDICATION
     Route: 065
  4. LOMOTIL [Concomitant]
     Active Substance: ATROPINE SULFATE\DIPHENOXYLATE HYDROCHLORIDE
     Indication: PRODUCT USED FOR UNKNOWN INDICATION
     Route: 065
  5. TARCEVA [Concomitant]
     Active Substance: ERLOTINIB HYDROCHLORIDE
     Indication: PRODUCT USED FOR UNKNOWN INDICATION
     Route: 065
  6. GILOTRIF [Suspect]
     Active Substance: AFATINIB
     Indication: NON-SMALL CELL LUNG CANCER
     Dosage: 40 MG
     Route: 048
     Dates: start: 20160509
  7. ZOFRAN [Concomitant]
     Active Substance: ONDANSETRON HYDROCHLORIDE
     Indication: PRODUCT USED FOR UNKNOWN INDICATION
     Route: 065

REACTIONS (13)
  - Nausea [Recovered/Resolved]
  - Abdominal pain [Not Recovered/Not Resolved]
  - Diarrhoea [Not Recovered/Not Resolved]
  - Diarrhoea [Unknown]
  - Pleural effusion [Unknown]
  - Bloody discharge [Not Recovered/Not Resolved]
  - Diarrhoea [Unknown]
  - Nausea [Unknown]
  - Diarrhoea [Recovered/Resolved]
  - Blood count abnormal [Recovered/Resolved]
  - Dehydration [Unknown]
  - Confusional state [Not Recovered/Not Resolved]
  - Sinus operation [Not Recovered/Not Resolved]

NARRATIVE: CASE EVENT DATE: 201605
